FAERS Safety Report 25081404 (Version 2)
Quarter: 2025Q3

REPORT INFORMATION
  Report Type: Spontaneous
  Country: EU (occurrence: EU)
  Receive Date: 20250316
  Receipt Date: 20250704
  Transmission Date: 20251021
  Serious: Yes (Other)
  Sender: AUROBINDO
  Company Number: EU-AFSSAPS-PA2025000218

PATIENT
  Age: 47 Year
  Sex: Female
  Weight: 94 kg

DRUGS (12)
  1. LORMETAZEPAM [Suspect]
     Active Substance: LORMETAZEPAM
     Indication: Anxiolytic therapy
     Dosage: 1 MILLIGRAM, ONCE A DAY (1 COMPRIM? DE 1MG AU COUCHER)
     Route: 048
     Dates: start: 20250207, end: 20250217
  2. ALPRAZOLAM [Suspect]
     Active Substance: ALPRAZOLAM
     Indication: Anxiolytic therapy
     Route: 048
     Dates: start: 20250207, end: 20250217
  3. AMOXICILLIN\CLAVULANIC ACID [Suspect]
     Active Substance: AMOXICILLIN\CLAVULANIC ACID
     Indication: Product used for unknown indication
     Dosage: 2 DOSAGE FORM, ONCE A DAY (1 SACHET MATIN ET SOIR)
     Route: 048
     Dates: start: 20250213, end: 20250217
  4. TRIMEPRAZINE [Suspect]
     Active Substance: TRIMEPRAZINE
     Indication: Psychotic disorder
     Dosage: 8 DOSAGE FORM, ONCE A DAY (8 COMPRIM?S LE SOIR JUSQU^AU 06/02, PUIS4 COMPRIM?S LE SOIR JUSQU^AU 13/0
     Route: 048
     Dates: start: 20250121, end: 20250206
  5. TRIMEPRAZINE [Suspect]
     Active Substance: TRIMEPRAZINE
     Dosage: 4 DOSAGE FORM, ONCE A DAY (8 COMPRIM?S LE SOIR JUSQU^AU 06/02, PUIS4 COMPRIM?S LE SOIR JUSQU^AU 13/0
     Route: 048
     Dates: start: 20250207, end: 20250213
  6. TRIMEPRAZINE [Suspect]
     Active Substance: TRIMEPRAZINE
     Dosage: 3 DOSAGE FORM, ONCE A DAY (8 COMPRIM?S LE SOIR JUSQU^AU 06/02, PUIS4 COMPRIM?S LE SOIR JUSQU^AU 13/0
     Route: 048
     Dates: start: 20250214, end: 20250216
  7. TRIMEPRAZINE [Suspect]
     Active Substance: TRIMEPRAZINE
     Dosage: 4 DOSAGE FORM, ONCE A DAY (8 COMPRIM?S LE SOIR JUSQU^AU 06/02, PUIS4 COMPRIM?S LE SOIR JUSQU^AU 13/0
     Route: 048
     Dates: start: 20250217
  8. ZUCLOPENTHIXOL [Suspect]
     Active Substance: ZUCLOPENTHIXOL
     Indication: Psychotic disorder
     Dosage: 9 DOSAGE FORM, ONCE A DAY (3CP MATIN, MIDI ET SOIR JUSQU^AU 07/02/2025, PUIS 3CP MATIN ET SOIR JUSQU
     Route: 048
     Dates: start: 20250120, end: 20250207
  9. ZUCLOPENTHIXOL [Suspect]
     Active Substance: ZUCLOPENTHIXOL
     Dosage: 6 DOSAGE FORM, ONCE A DAY (3CP MATIN, MIDI ET SOIR JUSQU^AU 07/02/2025, PUIS 3CP MATIN ET SOIR JUSQU
     Route: 048
     Dates: start: 20250207, end: 20250211
  10. ZUCLOPENTHIXOL [Suspect]
     Active Substance: ZUCLOPENTHIXOL
     Dosage: 4 DOSAGE FORM, ONCE A DAY (3CP MATIN, MIDI ET SOIR JUSQU^AU 07/02/2025, PUIS 3CP MATIN ET SOIR JUSQU
     Route: 048
     Dates: start: 20250211, end: 20250213
  11. ZUCLOPENTHIXOL [Suspect]
     Active Substance: ZUCLOPENTHIXOL
     Dosage: 4 DOSAGE FORM, ONCE A DAY (3CP MATIN, MIDI ET SOIR JUSQU^AU 07/02/2025, PUIS 3CP MATIN ET SOIR JUSQU
     Route: 048
     Dates: start: 20250217
  12. Hemoclar [Concomitant]
     Indication: Craniofacial fracture
     Dosage: 3 DOSAGE FORM, EVERY OTHER DAY
     Route: 045
     Dates: start: 20250213, end: 20250215

REACTIONS (2)
  - Thrombocytopenia [Recovered/Resolved]
  - Lymphopenia [Recovered/Resolved]

NARRATIVE: CASE EVENT DATE: 20250214
